FAERS Safety Report 20450627 (Version 1)
Quarter: 2022Q1

REPORT INFORMATION
  Report Type: Spontaneous
  Country: US (occurrence: None)
  Receive Date: 20220209
  Receipt Date: 20220209
  Transmission Date: 20220423
  Serious: Yes (Other)
  Sender: FDA-Public Use
  Company Number: 2022A055729

PATIENT
  Age: 25734 Day

DRUGS (1)
  1. PULMICORT FLEXHALER [Suspect]
     Active Substance: BUDESONIDE
     Indication: Hypersensitivity
     Dosage: 90 MCG/60 DOSE INHALER
     Route: 055

REACTIONS (6)
  - Joint injury [Unknown]
  - Arthropathy [Unknown]
  - Pain [Unknown]
  - COVID-19 [Unknown]
  - Off label use [Unknown]
  - Wrong technique in device usage process [Unknown]

NARRATIVE: CASE EVENT DATE: 20201203
